FAERS Safety Report 18500662 (Version 1)
Quarter: 2020Q4

REPORT INFORMATION
  Report Type: Spontaneous
  Country: US (occurrence: US)
  Receive Date: 20201112
  Receipt Date: 20201112
  Transmission Date: 20210114
  Serious: Yes (Other)
  Sender: FDA-Public Use
  Company Number: None

PATIENT
  Age: 69 Year
  Sex: Female

DRUGS (1)
  1. METOPROLOL ER(SUCC) [Suspect]
     Active Substance: METOPROLOL SUCCINATE
     Route: 048
     Dates: start: 20201106

REACTIONS (3)
  - Vertigo [None]
  - Product solubility abnormal [None]
  - Hypotension [None]

NARRATIVE: CASE EVENT DATE: 20201106
